FAERS Safety Report 8577899-0 (Version None)
Quarter: 2012Q3

REPORT INFORMATION
  Report Type: 
  Country: None (occurrence: None)
  Receive Date: 20120808
  Receipt Date: 20110718
  Transmission Date: 20120928
  Serious: No
  Sender: FDA-Public Use
  Company Number: US-BIOGENIDEC-2011BI026587

PATIENT
  Sex: Female

DRUGS (2)
  1. AVONEX [Suspect]
     Indication: MULTIPLE SCLEROSIS
     Route: 030
     Dates: start: 20081017
  2. AVONEX [Suspect]
     Route: 030
     Dates: start: 20110616

REACTIONS (3)
  - FATIGUE [None]
  - UPPER LIMB FRACTURE [None]
  - DIZZINESS [None]
